FAERS Safety Report 5619502-5 (Version None)
Quarter: 2008Q1

REPORT INFORMATION
  Report Type: 
  Country: None (occurrence: None)
  Receive Date: 20080111
  Receipt Date: 20070608
  Transmission Date: 20080703
  Serious: Yes (Other)
  Sender: FDA-Public Use
  Company Number: 07-001241

PATIENT
  Age: 24 Year
  Sex: Female
  Weight: 104.3 kg

DRUGS (1)
  1. FEMCON FE [Suspect]
     Indication: CONTRACEPTION
     Dosage: 0.4 MG/35 MCG, QD, ORAL
     Route: 048
     Dates: start: 20070421, end: 20070605

REACTIONS (6)
  - AMENORRHOEA [None]
  - BLOOD PRESSURE INCREASED [None]
  - CHEST DISCOMFORT [None]
  - DIZZINESS [None]
  - DRUG ADMINISTRATION ERROR [None]
  - HYPOAESTHESIA [None]
